FAERS Safety Report 8669994 (Version 3)
Quarter: 2013Q1

REPORT INFORMATION
  Report Type: Spontaneous
  Country: US (occurrence: US)
  Receive Date: 20120718
  Receipt Date: 20130116
  Transmission Date: 20140127
  Serious: No
  Sender: FDA-Public Use
  Company Number: US-009507513-1207USA004491

PATIENT
  Age: 59 None
  Sex: Female

DRUGS (7)
  1. VICTRELIS [Suspect]
     Indication: HEPATITIS C
     Dosage: 800 MG, TID
     Route: 048
     Dates: start: 20120621
  2. PEGINTRON [Suspect]
     Dosage: REDIPEN
     Route: 058
     Dates: start: 20120529
  3. RIBASPHERE [Suspect]
  4. CENTRUM (MINERALS (UNSPECIFIED) (+) VITAMINS (UNSPECIFIED)) [Concomitant]
  5. AMBIEN [Concomitant]
  6. ASPIRIN [Concomitant]
  7. CALCIUM (UNSPECIFIED) [Concomitant]

REACTIONS (6)
  - Eructation [Unknown]
  - Gastrooesophageal reflux disease [Unknown]
  - Flatulence [Unknown]
  - Depression [Unknown]
  - Decreased interest [Unknown]
  - Fatigue [Unknown]
